FAERS Safety Report 19479300 (Version 1)
Quarter: 2021Q3

REPORT INFORMATION
  Report Type: Spontaneous
  Country: US (occurrence: US)
  Receive Date: 20210701
  Receipt Date: 20210701
  Transmission Date: 20211014
  Serious: No
  Sender: FDA-Public Use
  Company Number: US-ORGANON-2002USA010453

PATIENT
  Age: 35 Year
  Sex: Female
  Weight: 107.03 kg

DRUGS (1)
  1. NEXPLANON [Suspect]
     Active Substance: ETONOGESTREL
     Indication: CONTRACEPTION
     Dosage: 1 ROD SUBDERMALLY EVERY 3 YEARS; LEFT ARM
     Route: 059
     Dates: start: 20200225

REACTIONS (5)
  - Product quality issue [Unknown]
  - Device expulsion [Unknown]
  - Complication associated with device [Unknown]
  - No adverse event [Unknown]
  - Wrong technique in product usage process [Unknown]

NARRATIVE: CASE EVENT DATE: 2020
